FAERS Safety Report 17202578 (Version 1)
Quarter: 2019Q4

REPORT INFORMATION
  Report Type: Spontaneous
  Country: IT (occurrence: IT)
  Receive Date: 20191226
  Receipt Date: 20191226
  Transmission Date: 20200122
  Serious: Yes (Other)
  Sender: FDA-Public Use
  Company Number: IT-MYLANLABS-2019M1108373

PATIENT
  Age: 79 Year
  Sex: Male
  Weight: 89 kg

DRUGS (1)
  1. ALLOPURINOL. [Suspect]
     Active Substance: ALLOPURINOL
     Indication: URATE NEPHROPATHY
     Dosage: 300 MILLIGRAM, QD
     Dates: start: 20190415, end: 20190506

REACTIONS (2)
  - Dermatitis exfoliative generalised [Recovered/Resolved]
  - Dermatitis [Recovered/Resolved]

NARRATIVE: CASE EVENT DATE: 20190427
